FAERS Safety Report 21298005 (Version 1)
Quarter: 2022Q3

REPORT INFORMATION
  Report Type: Spontaneous
  Country: US (occurrence: None)
  Receive Date: 20220902
  Receipt Date: 20220902
  Transmission Date: 20221026
  Serious: No
  Sender: FDA-Public Use
  Company Number: None

PATIENT
  Age: 44 Year
  Sex: Male

DRUGS (1)
  1. NALTREXONE [Suspect]
     Active Substance: NALTREXONE
     Dates: start: 20220715, end: 20220715

REACTIONS (2)
  - Device delivery system issue [None]
  - Needle issue [None]

NARRATIVE: CASE EVENT DATE: 20220715
